FAERS Safety Report 19035485 (Version 1)
Quarter: 2021Q1

REPORT INFORMATION
  Report Type: Spontaneous
  Country: GB (occurrence: GB)
  Receive Date: 20210320
  Receipt Date: 20210320
  Transmission Date: 20210420
  Serious: Yes (Hospitalization, Disabling, Other)
  Sender: FDA-Public Use
  Company Number: GB-MYLANLABS-2021M1012080

PATIENT
  Age: 21 Year
  Sex: Female
  Weight: 55.6 kg

DRUGS (6)
  1. ISOTRETINOIN. [Suspect]
     Active Substance: ISOTRETINOIN
     Indication: ACNE
     Dosage: 20 MILLIGRAM, QD
     Route: 048
     Dates: start: 20201105, end: 20210122
  2. FOSTAIR [Concomitant]
     Active Substance: BECLOMETHASONE\FORMOTEROL
     Dosage: 200MICROGRAMS / 6MICROGRAMS INHALERCFC?FREE
     Route: 055
  3. NYTOL [Concomitant]
     Active Substance: DIPHENHYDRAMINE HYDROCHLORIDE
     Dosage: UNK
     Dates: end: 20210220
  4. DERMOL                             /01330701/ [Concomitant]
     Dosage: 1 DOSAGE FORM, PRN
     Route: 061
  5. ERYTHROMYCIN. [Concomitant]
     Active Substance: ERYTHROMYCIN
     Dosage: 500 MILLIGRAM, BID
     Route: 048
  6. SALBUTAMOL [Concomitant]
     Active Substance: ALBUTEROL
     Dosage: 200 MICROGRAM, PRN
     Route: 055

REACTIONS (4)
  - Dyskinesia [Recovered/Resolved]
  - Blood glucose increased [Unknown]
  - Hypersensitivity [Recovered/Resolved]
  - Muscle spasms [Recovered/Resolved]

NARRATIVE: CASE EVENT DATE: 20210120
